FAERS Safety Report 8959851 (Version 2)
Quarter: 2012Q4

REPORT INFORMATION
  Report Type: Report from Study
  Country: CZ (occurrence: CZ)
  Receive Date: 20121212
  Receipt Date: 20121221
  Transmission Date: 20130627
  Serious: Yes (Hospitalization)
  Sender: FDA-Public Use
  Company Number: CZ-JNJFOC-20121202038

PATIENT
  Age: 54 Year
  Sex: Female

DRUGS (9)
  1. GOLIMUMAB [Suspect]
     Indication: RHEUMATOID ARTHRITIS
     Route: 065
     Dates: start: 20120309
  2. GOLIMUMAB [Suspect]
     Indication: RHEUMATOID ARTHRITIS
     Route: 065
     Dates: start: 20120911
  3. GOLIMUMAB [Suspect]
     Indication: RHEUMATOID ARTHRITIS
     Route: 065
     Dates: start: 20121204
  4. METHOTREXATE [Concomitant]
  5. PREDNISONE [Concomitant]
  6. ACIDUM FOLICUM [Concomitant]
  7. OMEPRAZOLE [Concomitant]
  8. IBUPROFEN [Concomitant]
  9. NITRENDIPIN [Concomitant]

REACTIONS (1)
  - Metrorrhagia [Recovered/Resolved]
